FAERS Safety Report 15782056 (Version 3)
Quarter: 2023Q1

REPORT INFORMATION
  Report Type: Report from Study
  Country: US (occurrence: US)
  Receive Date: 20190102
  Receipt Date: 20230130
  Transmission Date: 20230417
  Serious: Yes (Hospitalization)
  Sender: FDA-Public Use
  Company Number: US-PFIZER INC-2018537127

PATIENT
  Age: 82 Year
  Sex: Female
  Weight: 75 kg

DRUGS (5)
  1. LYRICA [Suspect]
     Active Substance: PREGABALIN
     Indication: Back pain
     Dosage: 1 DOSAGE FORM, TID
     Route: 048
  2. LYRICA [Suspect]
     Active Substance: PREGABALIN
     Indication: Atrial fibrillation
     Dosage: 100 MILLIGRAM, TID
     Route: 048
  3. LYRICA [Suspect]
     Active Substance: PREGABALIN
     Indication: Cardiac failure congestive
  4. LYRICA [Suspect]
     Active Substance: PREGABALIN
     Indication: Back pain
  5. ACETAMINOPHEN\HYDROCODONE [Concomitant]
     Active Substance: ACETAMINOPHEN\HYDROCODONE
     Indication: Pain
     Dosage: 2X/DAY [HYDROCODONE: 10MG, PARACETAMOL: 325MG]
     Route: 048
     Dates: start: 2005

REACTIONS (2)
  - Hospitalisation [Unknown]
  - Hypertension [Recovering/Resolving]

NARRATIVE: CASE EVENT DATE: 20181214
